FAERS Safety Report 24707993 (Version 1)
Quarter: 2024Q4

REPORT INFORMATION
  Report Type: Other
  Country: FR (occurrence: FR)
  Receive Date: 20241206
  Receipt Date: 20241206
  Transmission Date: 20250115
  Serious: Yes (Hospitalization, Other)
  Sender: B BRAUN
  Company Number: FR-B.Braun Medical Inc.-2166634

PATIENT
  Age: 77 Year
  Sex: Male
  Weight: 78 kg

DRUGS (3)
  1. MEROPENEM [Suspect]
     Active Substance: MEROPENEM
  2. AMIKACIN [Suspect]
     Active Substance: AMIKACIN
  3. ERTAPENEM. [Concomitant]

REACTIONS (2)
  - Neurotoxicity [Unknown]
  - Drug ineffective for unapproved indication [Unknown]
